FAERS Safety Report 5512545-1 (Version None)
Quarter: 2007Q4

REPORT INFORMATION
  Report Type: 
  Country: None (occurrence: None)
  Receive Date: 20071112
  Receipt Date: 20070813
  Transmission Date: 20080405
  Serious: No
  Sender: FDA-Public Use
  Company Number: A0669802A

PATIENT
  Age: 55 Year
  Sex: Female

DRUGS (4)
  1. AVANDAMET [Suspect]
     Dosage: 1TAB PER DAY
     Route: 048
  2. LIPITOR [Concomitant]
  3. VITAMINS [Concomitant]
  4. GLUCOPHAGE [Concomitant]
     Route: 048

REACTIONS (3)
  - ASTHENIA [None]
  - IMMOBILE [None]
  - PLATELET COUNT DECREASED [None]
